FAERS Safety Report 7197594-2 (Version None)
Quarter: 2010Q4

REPORT INFORMATION
  Report Type: 
  Country: None (occurrence: None)
  Receive Date: 20101213
  Receipt Date: 20101130
  Transmission Date: 20110411
  Serious: Yes (Death, Hospitalization)
  Sender: FDA-Public Use
  Company Number: 021356

PATIENT
  Sex: Female

DRUGS (4)
  1. KEPPRA [Suspect]
     Indication: EPILEPSY
     Dosage: 500 MG, 100 MG/ML CONCENRATE FOR SOLUTION, 10 VIALS OF 500 MG/5ML INTRAVENOUS (NOT OTHERWISE SPECIFI
     Route: 042
     Dates: start: 20101002, end: 20101004
  2. KEPPRA [Suspect]
     Indication: EPILEPSY
     Dosage: 500 MG BID, 500 MG 60 FILM COATED TABLETS ORAL), (500 MG QD ORAL)
     Route: 048
     Dates: start: 20101005, end: 20101006
  3. KEPPRA [Suspect]
     Indication: EPILEPSY
     Dosage: 500 MG BID, 500 MG 60 FILM COATED TABLETS ORAL), (500 MG QD ORAL)
     Route: 048
     Dates: start: 20101006, end: 20101008
  4. DUODOPA [Concomitant]

REACTIONS (8)
  - ALANINE AMINOTRANSFERASE INCREASED [None]
  - ASPARTATE AMINOTRANSFERASE INCREASED [None]
  - BLOOD LACTATE DEHYDROGENASE INCREASED [None]
  - BUNDLE BRANCH BLOCK LEFT [None]
  - CARDIAC FAILURE ACUTE [None]
  - LEUKOARAIOSIS [None]
  - METABOLIC ENCEPHALOPATHY [None]
  - POLYNEUROPATHY [None]
